FAERS Safety Report 7853567-5 (Version None)
Quarter: 2011Q4

REPORT INFORMATION
  Report Type: 
  Country: None (occurrence: None)
  Receive Date: 20111026
  Receipt Date: 20111021
  Transmission Date: 20120403
  Serious: Yes (Hospitalization)
  Sender: FDA-Public Use
  Company Number: CA-ABBOTT-11P-028-0865241-00

PATIENT
  Sex: Female
  Weight: 59.02 kg

DRUGS (4)
  1. METHOTREXATE [Concomitant]
     Indication: RHEUMATOID ARTHRITIS
     Route: 058
     Dates: start: 20090101
  2. HUMIRA [Suspect]
     Indication: RHEUMATOID ARTHRITIS
     Route: 058
     Dates: start: 20101221, end: 20111003
  3. LANESTA [Concomitant]
     Indication: CONTRACEPTION
     Route: 048
     Dates: start: 20030101
  4. FOLIC ACID [Concomitant]
     Indication: GASTRIC DISORDER
     Route: 048
     Dates: start: 20090101

REACTIONS (3)
  - BRAIN OEDEMA [None]
  - VIRAL INFECTION [None]
  - MIGRAINE [None]
